FAERS Safety Report 15183357 (Version 2)
Quarter: 2018Q3

REPORT INFORMATION
  Report Type: Spontaneous
  Country: US (occurrence: US)
  Receive Date: 20180723
  Receipt Date: 20180925
  Transmission Date: 20181010
  Serious: Yes (Hospitalization)
  Sender: FDA-Public Use
  Company Number: US-SA-2018SA194820

PATIENT
  Age: 50 Year
  Sex: Male
  Weight: 78 kg

DRUGS (1)
  1. FABRAZYME [Suspect]
     Active Substance: AGALSIDASE BETA
     Dosage: 1.02 MG/KG, QOW
     Route: 041
     Dates: start: 201704

REACTIONS (3)
  - Sciatica [Unknown]
  - Dysstasia [Unknown]
  - Malaise [Not Recovered/Not Resolved]

NARRATIVE: CASE EVENT DATE: 201807
